FAERS Safety Report 24571002 (Version 1)
Quarter: 2024Q4

REPORT INFORMATION
  Report Type: Spontaneous
  Country: US (occurrence: US)
  Receive Date: 20241101
  Receipt Date: 20241101
  Transmission Date: 20250114
  Serious: Yes (Hospitalization)
  Sender: CHEPLAPHARM
  Company Number: US-AstraZeneca-CH-00727822A

PATIENT
  Age: 79 Year
  Sex: Female

DRUGS (7)
  1. BUDESONIDE [Suspect]
     Active Substance: BUDESONIDE
     Dosage: PULMICORT 2 PUFFS AN THE MORNING AND 2 PUFFS AT NIGHT
  2. TEZSPIRE [Suspect]
     Active Substance: TEZEPELUMAB-EKKO
     Dates: start: 20241016
  3. TEZSPIRE [Suspect]
     Active Substance: TEZEPELUMAB-EKKO
     Dosage: FREQUENCY:EVERY 2 WEEKS. SHE HAS HAD 4 INJECTIONS OF THE TEZSPIRE 210MG AUTOINJECTOR AND WILL REC...
  4. SYMBICORT [Suspect]
     Active Substance: BUDESONIDE\FORMOTEROL FUMARATE DIHYDRATE
     Dosage: SYMBICORT 2 PUFFS AT NIGHT
  5. BREZTRI [Suspect]
     Active Substance: BUDESONIDE\FORMOTEROL\GLYCOPYRROLATE
  6. ALBUTEROL [Concomitant]
     Active Substance: ALBUTEROL
  7. PREDNISONE [Concomitant]
     Active Substance: PREDNISONE
     Dosage: PREDNISONE 40MG IN THE MORNING AND EVENING FOR 4-5 DAYS.?DAILY DOSE: 80 MILLIGRAM

REACTIONS (3)
  - Asthma [Recovered/Resolved]
  - Anxiety [Recovered/Resolved]
  - Wheezing [Recovered/Resolved]
